FAERS Safety Report 17005226 (Version 5)
Quarter: 2020Q1

REPORT INFORMATION
  Report Type: Report from Study
  Country: None (occurrence: FR)
  Receive Date: 20191107
  Receipt Date: 20200219
  Transmission Date: 20200409
  Serious: Yes (Hospitalization, Other)
  Sender: FDA-Public Use
  Company Number: FR-ABBVIE-19K-056-2994618-00

PATIENT
  Age: 73 Year
  Sex: Male

DRUGS (2)
  1. ELIQUIS [Suspect]
     Active Substance: APIXABAN
     Indication: PULMONARY EMBOLISM
     Route: 065
  2. DUODOPA [Suspect]
     Active Substance: CARBIDOPA\LEVODOPA
     Indication: PRODUCT USED FOR UNKNOWN INDICATION
     Dosage: MORNING DOSE WAS 9 ML, LA CONTINUOUS DOSE WAS 3.9, THE EXTRA DOSE WAS 3 ML.
     Route: 050
     Dates: start: 20181023

REACTIONS (9)
  - Urinary retention [Unknown]
  - Rectal haemorrhage [Not Recovered/Not Resolved]
  - Faecaloma [Unknown]
  - Pulmonary embolism [Unknown]
  - Device dislocation [Unknown]
  - Acute pulmonary oedema [Unknown]
  - Torticollis [Unknown]
  - Abdominal pain [Unknown]
  - Gastrointestinal polyp [Unknown]

NARRATIVE: CASE EVENT DATE: 20191215
